FAERS Safety Report 5892399-4 (Version None)
Quarter: 2008Q3

REPORT INFORMATION
  Report Type: 
  Country: None (occurrence: None)
  Receive Date: 20080919
  Receipt Date: 20080919
  Transmission Date: 20090109
  Serious: No
  Sender: FDA-Public Use
  Company Number: None

PATIENT
  Age: 16 Year
  Sex: Female
  Weight: 59 kg

DRUGS (1)
  1. METHOTREXATE [Suspect]
     Indication: LEUKAEMIA
     Dosage: 15 MG ONE DOSE PER RGM IT
     Route: 038
     Dates: start: 20080522, end: 20080909

REACTIONS (1)
  - LEUKOENCEPHALOPATHY [None]
